FAERS Safety Report 5680281-7 (Version None)
Quarter: 2008Q1

REPORT INFORMATION
  Report Type: 
  Country: None (occurrence: None)
  Receive Date: 20080326
  Receipt Date: 20080317
  Transmission Date: 20080703
  Serious: Yes (Other)
  Sender: FDA-Public Use
  Company Number: US-ROCHE-543767

PATIENT
  Sex: Female

DRUGS (1)
  1. BONIVA [Suspect]
     Indication: DRUG USE FOR UNKNOWN INDICATION
     Route: 065
     Dates: start: 20080123

REACTIONS (6)
  - ARTHRALGIA [None]
  - INSOMNIA [None]
  - PAIN IN JAW [None]
  - PAINFUL RESPIRATION [None]
  - SUICIDAL IDEATION [None]
  - WEIGHT DECREASED [None]
